FAERS Safety Report 13792913 (Version 9)
Quarter: 2018Q1

REPORT INFORMATION
  Report Type: Report from Study
  Country: US (occurrence: US)
  Receive Date: 20170726
  Receipt Date: 20180207
  Transmission Date: 20180508
  Serious: Yes (Hospitalization, Other)
  Sender: FDA-Public Use
  Company Number: US-BAYER-2017-136525

PATIENT
  Age: 56 Year
  Sex: Male
  Weight: 70.3 kg

DRUGS (9)
  1. ADEMPAS [Suspect]
     Active Substance: RIOCIGUAT
     Indication: PULMONARY ARTERIAL HYPERTENSION
     Dosage: 2.5 MG, TID
     Route: 048
  2. ADEMPAS [Suspect]
     Active Substance: RIOCIGUAT
     Indication: PULMONARY ARTERIAL HYPERTENSION
     Dosage: 2.5 MG, TID
     Route: 048
  3. ADEMPAS [Suspect]
     Active Substance: RIOCIGUAT
     Indication: PULMONARY ARTERIAL HYPERTENSION
     Dosage: 2.5 MG, TID
     Route: 048
  4. ADEMPAS [Suspect]
     Active Substance: RIOCIGUAT
     Indication: PULMONARY ARTERIAL HYPERTENSION
     Dosage: 2.5 MG, TID
     Route: 048
  5. SILDENAFIL CITRATE. [Concomitant]
     Active Substance: SILDENAFIL CITRATE
     Dosage: UNK
  6. ADEMPAS [Suspect]
     Active Substance: RIOCIGUAT
     Indication: PULMONARY ARTERIAL HYPERTENSION
     Dosage: UNK
     Dates: start: 20151231
  7. OPSUMIT [Concomitant]
     Active Substance: MACITENTAN
     Dosage: UNK
  8. ADEMPAS [Suspect]
     Active Substance: RIOCIGUAT
     Indication: PULMONARY ARTERIAL HYPERTENSION
     Dosage: 2.5 MG, TID
     Route: 048
  9. REMODULIN [Concomitant]
     Active Substance: TREPROSTINIL
     Dosage: UNK

REACTIONS (16)
  - Electrolyte imbalance [Unknown]
  - Oxygen saturation decreased [Unknown]
  - Lung transplant [None]
  - Hospitalisation [Unknown]
  - Dyspnoea at rest [None]
  - Chest pain [None]
  - Oedema [None]
  - Cellulitis [None]
  - Dyspnoea [Unknown]
  - Blood sodium decreased [Unknown]
  - Fluid overload [None]
  - Blood potassium decreased [None]
  - Stress [None]
  - Dyspnoea [None]
  - Oedema [Unknown]
  - Cellulitis [Unknown]

NARRATIVE: CASE EVENT DATE: 201710
